FAERS Safety Report 18917011 (Version 1)
Quarter: 2021Q1

REPORT INFORMATION
  Report Type: Report from Study
  Country: IT (occurrence: IT)
  Receive Date: 20210219
  Receipt Date: 20210219
  Transmission Date: 20210420
  Serious: Yes (Other)
  Sender: FDA-Public Use
  Company Number: IT-TEVA-2021-IT-1881219

PATIENT
  Age: 79 Year
  Sex: Female

DRUGS (2)
  1. RIVASTIGMINE. [Suspect]
     Active Substance: RIVASTIGMINE
     Route: 065
     Dates: start: 20201231, end: 20210106
  2. DELECIT 600 MG SOLUZIONE ORALE [Suspect]
     Active Substance: CHOLINE ALFOSCERATE
     Indication: COGNITIVE DISORDER
     Dates: start: 20201101, end: 20210106

REACTIONS (2)
  - Oliguria [Unknown]
  - Flank pain [Unknown]

NARRATIVE: CASE EVENT DATE: 20210104
